FAERS Safety Report 7804311-9 (Version None)
Quarter: 2011Q4

REPORT INFORMATION
  Report Type: 
  Country: None (occurrence: None)
  Receive Date: 20111010
  Receipt Date: 20111004
  Transmission Date: 20120403
  Serious: Yes (Hospitalization, Other)
  Sender: FDA-Public Use
  Company Number: GR-BRISTOL-MYERS SQUIBB COMPANY-16128936

PATIENT
  Age: 75 Year
  Sex: Male

DRUGS (1)
  1. SPRYCEL [Suspect]
     Indication: CHRONIC MYELOID LEUKAEMIA
     Dosage: 24MAY11-30MAY2011:100MG/D,ON31MAY11 DOSE DICREASES 50MG/D.DISCONTINUED:JUNE/2011,RESTARTEDSEP2011
     Route: 048
     Dates: start: 20110524

REACTIONS (5)
  - HEADACHE [None]
  - VISUAL IMPAIRMENT [None]
  - NEOPLASM MALIGNANT [None]
  - DYSPHORIA [None]
  - FEELING ABNORMAL [None]
